FAERS Safety Report 18148216 (Version 1)
Quarter: 2020Q3

REPORT INFORMATION
  Report Type: Spontaneous
  Country: CA (occurrence: CA)
  Receive Date: 20200814
  Receipt Date: 20200814
  Transmission Date: 20201103
  Serious: Yes (Disabling)
  Sender: FDA-Public Use
  Company Number: CA-TEVA-2020-CA-1813405

PATIENT
  Age: 72 Year
  Sex: Male
  Weight: 99.88 kg

DRUGS (10)
  1. FLOVENT HFA [Concomitant]
     Active Substance: FLUTICASONE PROPIONATE
  2. PRAVASTATIN. [Concomitant]
     Active Substance: PRAVASTATIN
  3. ALDARA [Suspect]
     Active Substance: IMIQUIMOD
     Indication: ACTINIC KERATOSIS
  4. TAMSULOSIN [Concomitant]
     Active Substance: TAMSULOSIN
  5. TARO?WARFARIN [Concomitant]
     Active Substance: WARFARIN
  6. HYDERM CRM 1% [Concomitant]
  7. XARELTO [Concomitant]
     Active Substance: RIVAROXABAN
  8. OMEPRAZOLE. [Concomitant]
     Active Substance: OMEPRAZOLE
  9. VALACYCLOVIR [Suspect]
     Active Substance: VALACYCLOVIR HYDROCHLORIDE
     Indication: HERPES ZOSTER
     Dosage: 3000 MILLIGRAM DAILY;
  10. VITALUX ADVANCED PLUS OMEGA?3 [Concomitant]

REACTIONS (2)
  - Dyschromatopsia [Not Recovered/Not Resolved]
  - Herpes zoster [Not Recovered/Not Resolved]
